FAERS Safety Report 7476640-2 (Version None)
Quarter: 2011Q2

REPORT INFORMATION
  Report Type: 
  Country: None (occurrence: None)
  Receive Date: 20110510
  Receipt Date: 20110510
  Transmission Date: 20111010
  Serious: Yes (Life-Threatening, Hospitalization, Other)
  Sender: FDA-Public Use
  Company Number: None

PATIENT
  Sex: Female
  Weight: 58.9676 kg

DRUGS (2)
  1. NAPROXEN [Suspect]
     Indication: NERVE COMPRESSION
     Dosage: 1 TABLET TWICE A DAY PO
     Route: 048
     Dates: start: 20071114, end: 20071118
  2. NAPROXEN [Suspect]
     Indication: NERVE COMPRESSION
     Dosage: 1 TABLET TWICE A DAY PO
     Route: 048
     Dates: start: 20080104, end: 20080113

REACTIONS (6)
  - ILEAL ULCER [None]
  - OVARIAN CYST [None]
  - CHANGE OF BOWEL HABIT [None]
  - DIARRHOEA [None]
  - EYE SWELLING [None]
  - ABDOMINAL DISTENSION [None]
